FAERS Safety Report 6423654-7 (Version None)
Quarter: 2009Q4

REPORT INFORMATION
  Report Type: 
  Country: None (occurrence: None)
  Receive Date: 20091102
  Receipt Date: 20091023
  Transmission Date: 20100525
  Serious: Yes (Hospitalization)
  Sender: FDA-Public Use
  Company Number: US-MERCK-0910USA03111

PATIENT
  Age: 45 Year
  Sex: Female

DRUGS (5)
  1. HYZAAR [Suspect]
     Indication: HYPERTENSION
     Route: 048
     Dates: end: 20090101
  2. HYZAAR [Suspect]
     Route: 048
     Dates: start: 20090101
  3. SOMA [Concomitant]
     Route: 065
  4. TRAMADOL HYDROCHLORIDE [Concomitant]
     Route: 065
  5. NEXIUM [Concomitant]
     Route: 065

REACTIONS (2)
  - BLOOD POTASSIUM DECREASED [None]
  - ROAD TRAFFIC ACCIDENT [None]
